FAERS Safety Report 6075733-4 (Version None)
Quarter: 2009Q1

REPORT INFORMATION
  Report Type: 
  Country: None (occurrence: None)
  Receive Date: 20090212
  Receipt Date: 20090205
  Transmission Date: 20090719
  Serious: Yes (Hospitalization)
  Sender: FDA-Public Use
  Company Number: AU-AMGEN-QUU327791

PATIENT
  Sex: Female
  Weight: 120 kg

DRUGS (5)
  1. NEULASTA [Suspect]
     Indication: CHEMOTHERAPY
     Route: 065
     Dates: start: 20081201
  2. NEUPOGEN [Suspect]
     Indication: CHEMOTHERAPY
     Dates: start: 20090128
  3. FLUOROURACIL [Concomitant]
     Dates: start: 20081201
  4. EPIRUBICIN [Concomitant]
     Dates: start: 20081201
  5. CYCLOPHOSPHAMIDE [Concomitant]
     Dates: start: 20081201

REACTIONS (2)
  - FEBRILE NEUTROPENIA [None]
  - NEUTROPENIA [None]
